FAERS Safety Report 5654148-4 (Version None)
Quarter: 2008Q1

REPORT INFORMATION
  Report Type: 
  Country: None (occurrence: None)
  Receive Date: 20080306
  Receipt Date: 20080211
  Transmission Date: 20080703
  Serious: No
  Sender: FDA-Public Use
  Company Number: US-BOEHRINGER INGELHEIM GMBH, GERMANY-2008-BP-02078BP

PATIENT
  Age: 49 Year
  Sex: Female

DRUGS (1)
  1. MICARDIS HCT [Suspect]
     Route: 048

REACTIONS (1)
  - VOMITING [None]
